FAERS Safety Report 16442359 (Version 1)
Quarter: 2019Q2

REPORT INFORMATION
  Report Type: Report from Study
  Country: None (occurrence: US)
  Receive Date: 20190617
  Receipt Date: 20190617
  Transmission Date: 20190711
  Serious: No
  Sender: FDA-Public Use
  Company Number: US-US WORLDMEDS, LLC-USW201904-000751

PATIENT
  Age: 50 Year
  Sex: Female

DRUGS (7)
  1. NEUPRO [Concomitant]
     Active Substance: ROTIGOTINE
  2. VALSARTAN. [Concomitant]
     Active Substance: VALSARTAN
  3. XANAX [Concomitant]
     Active Substance: ALPRAZOLAM
  4. XADAGO [Concomitant]
     Active Substance: SAFINAMIDE MESYLATE
  5. APOKYN [Suspect]
     Active Substance: APOMORPHINE HYDROCHLORIDE
     Route: 058
     Dates: start: 20190411
  6. SINEMET [Concomitant]
     Active Substance: CARBIDOPA\LEVODOPA
  7. APOKYN [Suspect]
     Active Substance: APOMORPHINE HYDROCHLORIDE
     Indication: PARKINSON^S DISEASE
     Route: 058
     Dates: start: 20190411

REACTIONS (4)
  - Dyskinesia [Recovered/Resolved]
  - Head discomfort [Recovered/Resolved]
  - Confusional state [Recovered/Resolved]
  - Injection site bruising [Recovering/Resolving]

NARRATIVE: CASE EVENT DATE: 201904
